FAERS Safety Report 7660632-4 (Version None)
Quarter: 2011Q3

REPORT INFORMATION
  Report Type: 
  Country: None (occurrence: None)
  Receive Date: 20110805
  Receipt Date: 20101118
  Transmission Date: 20111222
  Serious: No
  Sender: FDA-Public Use
  Company Number: US-ABBOTT-10P-163-0686933-00

PATIENT
  Sex: Female
  Weight: 86.26 kg

DRUGS (4)
  1. NIASPAN [Suspect]
     Indication: HIGH DENSITY LIPOPROTEIN DECREASED
     Dates: start: 20101112, end: 20101113
  2. COUMADIN [Concomitant]
     Indication: PULMONARY EMBOLISM
  3. ELAVIL [Concomitant]
     Indication: HEADACHE
  4. VITAMIN D [Concomitant]
     Indication: VITAMIN SUPPLEMENTATION

REACTIONS (4)
  - FLUSHING [None]
  - PRURITUS [None]
  - SWELLING FACE [None]
  - BRADYPHRENIA [None]
